FAERS Safety Report 9861968 (Version 1)
Quarter: 2014Q1

REPORT INFORMATION
  Report Type: Spontaneous
  Country: CH (occurrence: CH)
  Receive Date: 20140203
  Receipt Date: 20140203
  Transmission Date: 20141002
  Serious: Yes (Hospitalization)
  Sender: FDA-Public Use
  Company Number: CH-TEVA-458751ISR

PATIENT
  Age: 49 Year
  Sex: Male

DRUGS (2)
  1. QUETIAPINE [Suspect]
     Dosage: 12 GRAM DAILY; CONTROLLED RELEASE, 60 XR TABLETS, 12G
     Route: 048
  2. VENLAFAXINE [Suspect]
     Route: 048

REACTIONS (5)
  - Bezoar [Recovering/Resolving]
  - Tachycardia [Recovering/Resolving]
  - Miosis [Recovering/Resolving]
  - Coma [Recovering/Resolving]
  - Overdose [Recovering/Resolving]
